FAERS Safety Report 17025103 (Version 1)
Quarter: 2019Q4

REPORT INFORMATION
  Report Type: Spontaneous
  Country: US (occurrence: US)
  Receive Date: 20191113
  Receipt Date: 20191113
  Transmission Date: 20200122
  Serious: Yes (Other)
  Sender: FDA-Public Use
  Company Number: US-SEBELA IRELAND LIMITED-2019SEB00232

PATIENT
  Sex: Female

DRUGS (2)
  1. XELJANZ XR [Suspect]
     Active Substance: TOFACITINIB CITRATE
     Indication: RHEUMATOID ARTHRITIS
     Dosage: 11 MG, 1X/DAY
     Route: 048
     Dates: start: 2018
  2. IMURAN [Suspect]
     Active Substance: AZATHIOPRINE
     Dosage: UNK

REACTIONS (6)
  - Swelling face [Unknown]
  - Skin weeping [Unknown]
  - Peritoneal haemorrhage [Unknown]
  - Dysuria [Unknown]
  - Rosacea [Not Recovered/Not Resolved]
  - Blood pressure fluctuation [Unknown]
